FAERS Safety Report 10522997 (Version 1)
Quarter: 2014Q4

REPORT INFORMATION
  Report Type: Spontaneous
  Country: GB (occurrence: None)
  Receive Date: 20141010
  Receipt Date: 20141010
  Transmission Date: 20150528
  Serious: Yes (Disabling)
  Sender: FDA-Public Use
  Company Number: B1031889A

PATIENT
  Age: 20 Year
  Sex: Male
  Weight: 77.84 kg

DRUGS (1)
  1. PAROXETINE HYDROCHLORIDE. [Suspect]
     Active Substance: PAROXETINE HYDROCHLORIDE
     Indication: DIZZINESS
     Route: 048
     Dates: start: 200208, end: 200708

REACTIONS (6)
  - Dissociation [None]
  - Musculoskeletal discomfort [None]
  - Drug withdrawal syndrome [None]
  - Paraesthesia [None]
  - Emotional disorder [None]
  - Off label use [None]

NARRATIVE: CASE EVENT DATE: 2004
